FAERS Safety Report 18414911 (Version 2)
Quarter: 2025Q2

REPORT INFORMATION
  Report Type: Report from Study
  Country: US (occurrence: US)
  Receive Date: 20201022
  Receipt Date: 20250621
  Transmission Date: 20250716
  Serious: Yes (Congenital Anomaly)
  Sender: AUROBINDO
  Company Number: US-AUROBINDO-AUR-APL-2020-053658

PATIENT

DRUGS (1)
  1. DIVALPROEX SODIUM [Suspect]
     Active Substance: DIVALPROEX SODIUM
     Indication: Product used for unknown indication
     Route: 064

REACTIONS (3)
  - Hypotonia [Unknown]
  - Motor developmental delay [Unknown]
  - Foetal exposure during pregnancy [Unknown]
